FAERS Safety Report 9508061 (Version 1)
Quarter: 2013Q3

REPORT INFORMATION
  Report Type: Spontaneous
  Country: DK (occurrence: DK)
  Receive Date: 20130909
  Receipt Date: 20130909
  Transmission Date: 20140515
  Serious: Yes (Hospitalization, Disabling)
  Sender: FDA-Public Use
  Company Number: PHHY2013DK095900

PATIENT
  Age: 44 Year
  Sex: Female

DRUGS (2)
  1. MALONETTA [Suspect]
     Indication: CONTRACEPTION
     Dosage: 1 DF, QD
     Route: 048
     Dates: start: 201306, end: 20130814
  2. PULMICORT [Concomitant]
     Indication: ASTHMA
     Route: 055

REACTIONS (5)
  - Cerebrovascular accident [Not Recovered/Not Resolved]
  - Thrombotic cerebral infarction [Recovered/Resolved with Sequelae]
  - Muscular weakness [Not Recovered/Not Resolved]
  - Disturbance in attention [Not Recovered/Not Resolved]
  - Motor dysfunction [Not Recovered/Not Resolved]
